FAERS Safety Report 9427114 (Version 1)
Quarter: 2013Q3

REPORT INFORMATION
  Report Type: Spontaneous
  Country: US (occurrence: US)
  Receive Date: 20130730
  Receipt Date: 20130730
  Transmission Date: 20140515
  Serious: No
  Sender: FDA-Public Use
  Company Number: US-ABBOTT-12P-163-0972804-00

PATIENT
  Age: 80 Year
  Sex: Female
  Weight: 55.39 kg

DRUGS (3)
  1. NIASPAN (COATED) 500MG [Suspect]
     Indication: BLOOD CHOLESTEROL INCREASED
     Dates: start: 20120818
  2. ISOSORBIDE [Concomitant]
     Indication: HYPERTENSION
  3. FISH OIL [Concomitant]
     Indication: SUPPLEMENTATION THERAPY

REACTIONS (2)
  - Pruritus generalised [Recovered/Resolved]
  - Erythema [Recovered/Resolved]
